FAERS Safety Report 20952395 (Version 14)
Quarter: 2024Q1

REPORT INFORMATION
  Report Type: Spontaneous
  Country: US (occurrence: US)
  Receive Date: 20220613
  Receipt Date: 20240125
  Transmission Date: 20240410
  Serious: Yes (Other)
  Sender: FDA-Public Use
  Company Number: US-PFIZER INC-202200825559

PATIENT
  Age: 75 Year
  Sex: Female

DRUGS (3)
  1. IBRANCE [Suspect]
     Active Substance: PALBOCICLIB
     Indication: Breast cancer metastatic
     Dosage: UNK
  2. IBRANCE [Suspect]
     Active Substance: PALBOCICLIB
     Dosage: 100 MG
  3. IBRANCE [Suspect]
     Active Substance: PALBOCICLIB
     Dosage: TAKE 1 TAB BY MOUTH DAILY FOR 2 WEEKS, FOLLOWED BY A 2 WEEK REST, TAKE WITH FOOD, SWALLOW WHOLE
     Route: 048

REACTIONS (3)
  - Neutropenia [Unknown]
  - Off label use [Unknown]
  - Product use issue [Unknown]
